FAERS Safety Report 7449508-5 (Version None)
Quarter: 2011Q2

REPORT INFORMATION
  Report Type: 
  Country: None (occurrence: None)
  Receive Date: 20110502
  Receipt Date: 20110421
  Transmission Date: 20111010
  Serious: Yes (Death, Hospitalization, Other)
  Sender: FDA-Public Use
  Company Number: JP-BAYER-200912812BYL

PATIENT
  Age: 74 Year
  Sex: Female

DRUGS (15)
  1. ALDACTONE [Concomitant]
     Indication: HEPATIC HYDROTHORAX
     Dosage: BEFORE NEXAVAR ADMINISTRATION
     Route: 048
     Dates: end: 20090813
  2. LASIX [Concomitant]
     Indication: HEPATIC HYDROTHORAX
     Dosage: BEFORE NEXAVAR ADMINISTRATION
     Route: 048
  3. LASIX [Concomitant]
     Dosage: 20 MG
     Route: 048
     Dates: start: 20090813
  4. ALDACTONE [Concomitant]
     Dosage: 50 MG (TREATMENT, HEPATIC HYDROTHORAX)
     Dates: start: 20091120
  5. MUCOSTA [Concomitant]
     Indication: GASTRITIS
     Dosage: BEFORE NEXAVAR ADMINISTRATION
     Route: 048
  6. LASIX [Concomitant]
     Dosage: 40 MG (HEPATIC HYDROTHORAX)
     Route: 048
     Dates: start: 20091120
  7. LIVACT [Concomitant]
     Dosage: BEFORE NEXAVAR ADMINISTRATION
     Route: 048
     Dates: end: 20090803
  8. FELBINAC [Concomitant]
     Indication: BACK PAIN
     Dosage: BEFORE NEXAVAR ADMINISTRATION
     Route: 062
  9. METHYCOBAL [Concomitant]
     Indication: NEUROPATHY PERIPHERAL
     Dosage: BEFORE NEXAVAR ADMINISTRATION
     Route: 048
  10. NEXAVAR [Suspect]
     Indication: HEPATIC NEOPLASM MALIGNANT
     Route: 048
     Dates: start: 20090716, end: 20090803
  11. PARIET [Concomitant]
     Indication: REFLUX OESOPHAGITIS
     Dosage: BEFORE NEXAVAR ADMINISTRATION
     Route: 048
  12. URSO 250 [Concomitant]
     Dosage: BEFORE NEXAVAR ADMINISTRATION
     Route: 048
  13. GLAKAY [Concomitant]
     Dosage: BEFORE NEXAVAR ADMINISTRATION
     Route: 048
  14. NEXAVAR [Suspect]
     Dosage: 400 MG (DAILY DOSE), , ORAL
     Route: 048
     Dates: start: 20090903
  15. NEXAVAR [Suspect]
     Dosage: 400 MG, DAILY 5 DAYS/ WEEK
     Dates: start: 20090914, end: 20091109

REACTIONS (5)
  - HEPATIC NEOPLASM MALIGNANT [None]
  - PALMAR-PLANTAR ERYTHRODYSAESTHESIA SYNDROME [None]
  - HEPATIC FUNCTION ABNORMAL [None]
  - HEPATIC ENCEPHALOPATHY [None]
  - HEPATIC HYDROTHORAX [None]
